FAERS Safety Report 4955818-3 (Version None)
Quarter: 2006Q1

REPORT INFORMATION
  Report Type: 
  Country: None (occurrence: None)
  Receive Date: 20060327
  Receipt Date: 20060327
  Transmission Date: 20060701
  Serious: Yes (Hospitalization)
  Sender: FDA-Public Use
  Company Number: None

PATIENT
  Age: 54 Year
  Sex: Male
  Weight: 149.687 kg

DRUGS (1)
  1. BLEOMYCIN [Suspect]
     Indication: HODGKIN'S DISEASE
     Dosage: 20-26 UNITS Q 2 WEEKS OR SO IV
     Route: 042
     Dates: start: 20051111, end: 20060227

REACTIONS (4)
  - BACTERIA SPUTUM IDENTIFIED [None]
  - LUNG INFILTRATION [None]
  - OXYGEN SATURATION DECREASED [None]
  - STAPHYLOCOCCAL INFECTION [None]
